FAERS Safety Report 7554164-1 (Version None)
Quarter: 2011Q2

REPORT INFORMATION
  Report Type: 
  Country: None (occurrence: None)
  Receive Date: 20110610
  Receipt Date: 20110527
  Transmission Date: 20111010
  Serious: Yes (Life-Threatening, Hospitalization, Other)
  Sender: FDA-Public Use
  Company Number: 2011MA005697

PATIENT
  Age: 33 Year
  Sex: Male

DRUGS (1)
  1. DIAZEPAM [Suspect]
     Indication: OVERDOSE
     Dosage: 1X

REACTIONS (5)
  - LOSS OF CONSCIOUSNESS [None]
  - HYPOTENSION [None]
  - MIOSIS [None]
  - MULTIPLE DRUG OVERDOSE [None]
  - ACUTE RESPIRATORY FAILURE [None]
